FAERS Safety Report 23318285 (Version 1)
Quarter: 2023Q4

REPORT INFORMATION
  Report Type: Other
  Country: CA (occurrence: None)
  Receive Date: 20231220
  Receipt Date: 20231220
  Transmission Date: 20240110
  Serious: No
  Sender: FDA-Public Use
  Company Number: CA-ROCHE-3402045

PATIENT
  Age: 35 Year
  Sex: Female

DRUGS (1)
  1. OCREVUS [Suspect]
     Active Substance: OCRELIZUMAB
     Indication: Relapsing-remitting multiple sclerosis
     Dosage: MORE DOSAGE INFORMATION: 300 MG AT DAY 0 AND 14, THEN 600 MG EVERY 6 MONTHS
     Route: 042
     Dates: start: 20211109

REACTIONS (8)
  - Cough [Recovering/Resolving]
  - Respiratory tract congestion [Recovering/Resolving]
  - Nasal discharge discolouration [Recovering/Resolving]
  - Wound complication [Recovering/Resolving]
  - Sinusitis [Recovering/Resolving]
  - Staphylococcal infection [Recovering/Resolving]
  - Viral infection [Unknown]
  - Wound infection [Recovering/Resolving]

NARRATIVE: CASE EVENT DATE: 20230804
